FAERS Safety Report 4766779-4 (Version None)
Quarter: 2005Q3

REPORT INFORMATION
  Report Type: 
  Country: None (occurrence: None)
  Receive Date: 20050908
  Receipt Date: 20050826
  Transmission Date: 20060218
  Serious: Yes (Hospitalization)
  Sender: FDA-Public Use
  Company Number: USA-2005-0020870

PATIENT
  Age: 66 Year
  Sex: Female
  Weight: 66.2 kg

DRUGS (6)
  1. OXYCONTIN [Suspect]
     Indication: CANCER PAIN
     Dosage: 20 MG, BID, ORAL
     Route: 048
  2. OXYCODONE HCL [Suspect]
     Indication: PAIN
     Dosage: 100 MG, DAILY, ORAL
     Route: 048
  3. LEXAPRO [Concomitant]
  4. ACTOS [Concomitant]
  5. TOPROL-XL [Concomitant]
  6. SENOKOT [Concomitant]

REACTIONS (2)
  - MALIGNANT NEOPLASM PROGRESSION [None]
  - METASTASES TO SPINE [None]
